FAERS Safety Report 21683007 (Version 2)
Quarter: 2022Q4

REPORT INFORMATION
  Report Type: Report from Study
  Country: HR (occurrence: HR)
  Receive Date: 20221205
  Receipt Date: 20221207
  Transmission Date: 20230113
  Serious: Yes (Death, Hospitalization, Other)
  Sender: FDA-Public Use
  Company Number: HR-PFIZER INC-202201339114

PATIENT
  Age: 65 Year
  Sex: Male

DRUGS (1)
  1. METHYLPREDNISOLONE [Suspect]
     Active Substance: METHYLPREDNISOLONE
     Dosage: UNK

REACTIONS (4)
  - Strongyloidiasis [Fatal]
  - Ischaemic stroke [Fatal]
  - Disseminated strongyloidiasis [Unknown]
  - Meningitis Escherichia [Unknown]

NARRATIVE: CASE EVENT DATE: 20210101
